FAERS Safety Report 4917777-9 (Version None)
Quarter: 2006Q1

REPORT INFORMATION
  Report Type: 
  Country: None (occurrence: None)
  Receive Date: 20060215
  Receipt Date: 20060202
  Transmission Date: 20060701
  Serious: Yes (Other)
  Sender: FDA-Public Use
  Company Number: 2006018606

PATIENT
  Age: 62 Year
  Sex: Female
  Weight: 92.5338 kg

DRUGS (5)
  1. CELEBREX [Suspect]
     Indication: OSTEOARTHRITIS
     Dosage: 200 MG
     Dates: start: 20030101, end: 20040101
  2. LYRICA [Suspect]
     Indication: PAIN
     Dosage: 2 IN 1 D
  3. AVAPRO [Concomitant]
  4. LIPITOR [Concomitant]
  5. FLAXSEED OIL (LINSEED OIL) [Concomitant]

REACTIONS (4)
  - ARTHROPATHY [None]
  - HIP ARTHROPLASTY [None]
  - PAIN [None]
  - ROTATOR CUFF REPAIR [None]
